FAERS Safety Report 16167313 (Version 1)
Quarter: 2019Q2

REPORT INFORMATION
  Report Type: Spontaneous
  Country: TR (occurrence: TR)
  Receive Date: 20190408
  Receipt Date: 20190408
  Transmission Date: 20190711
  Serious: Yes (Other)
  Sender: FDA-Public Use
  Company Number: TR-ACCORD-120172

PATIENT
  Age: 66 Year
  Sex: Male

DRUGS (8)
  1. TRAMADOL. [Concomitant]
     Active Substance: TRAMADOL
     Route: 042
  2. GABAPENTIN. [Concomitant]
     Active Substance: GABAPENTIN
     Route: 048
  3. INSULIN [Concomitant]
     Active Substance: INSULIN NOS
     Indication: TYPE 2 DIABETES MELLITUS
  4. SALBUTAMOL [Concomitant]
     Active Substance: ALBUTEROL
     Indication: CHRONIC OBSTRUCTIVE PULMONARY DISEASE
  5. HYDROCHLOROTHIAZIDE/TELMISARTAN [Concomitant]
     Indication: HYPERTENSION
  6. QUETIAPINE. [Suspect]
     Active Substance: QUETIAPINE
     Indication: SEROTONIN SYNDROME
  7. HALOPERIDOL. [Suspect]
     Active Substance: HALOPERIDOL
     Indication: SEROTONIN SYNDROME
  8. AMLODIPINE [Concomitant]
     Active Substance: AMLODIPINE BESYLATE
     Indication: HYPERTENSION

REACTIONS (1)
  - Condition aggravated [Recovering/Resolving]
